FAERS Safety Report 8512412 (Version 3)
Quarter: 2015Q2

REPORT INFORMATION
  Report Type: Spontaneous
  Country: US (occurrence: US)
  Receive Date: 20120413
  Receipt Date: 20150605
  Transmission Date: 20150821
  Serious: Yes (Other)
  Sender: FDA-Public Use
  Company Number: US-ASTRAZENECA-2011SE41807

PATIENT
  Age: 63 Year
  Sex: Female
  Weight: 88.5 kg

DRUGS (12)
  1. NEURONTIN [Concomitant]
     Active Substance: GABAPENTIN
     Indication: NEURALGIA
     Dosage: UNK PRN, 4 OR 5 YEARS
     Route: 048
  2. NEXIUM [Suspect]
     Active Substance: ESOMEPRAZOLE MAGNESIUM
     Indication: GASTROOESOPHAGEAL REFLUX DISEASE
     Route: 048
     Dates: start: 2010, end: 20140512
  3. NEXIUM [Suspect]
     Active Substance: ESOMEPRAZOLE MAGNESIUM
     Indication: GASTROOESOPHAGEAL REFLUX DISEASE
     Route: 048
     Dates: start: 2011, end: 201501
  4. NEXIUM [Suspect]
     Active Substance: ESOMEPRAZOLE MAGNESIUM
     Indication: CHOKING
     Route: 048
     Dates: start: 2011, end: 201501
  5. BENICAR [Concomitant]
     Active Substance: OLMESARTAN MEDOXOMIL
     Indication: BLOOD PRESSURE ABNORMAL
     Route: 048
  6. NEXIUM [Suspect]
     Active Substance: ESOMEPRAZOLE MAGNESIUM
     Indication: DYSPHAGIA
     Route: 048
     Dates: start: 2010, end: 20140512
  7. NEXIUM [Suspect]
     Active Substance: ESOMEPRAZOLE MAGNESIUM
     Indication: CHOKING
     Route: 048
     Dates: start: 2010, end: 20140512
  8. OMEPRAZOLE OTC [Suspect]
     Active Substance: OMEPRAZOLE
     Indication: GASTROOESOPHAGEAL REFLUX DISEASE
     Route: 048
  9. NEXIUM [Suspect]
     Active Substance: ESOMEPRAZOLE MAGNESIUM
     Indication: DYSPHAGIA
     Route: 048
     Dates: start: 2011, end: 201501
  10. OMEPRAZOLE OTC [Suspect]
     Active Substance: OMEPRAZOLE
     Indication: DYSPHAGIA
     Route: 048
  11. BENACOL [Concomitant]
     Active Substance: BETHANECHOL CHLORIDE
     Indication: HYPERTENSION
     Dosage: 20 MG EVERY MORNING, 4 OR 5 YEARS
     Route: 048
  12. OMEPRAZOLE OTC [Suspect]
     Active Substance: OMEPRAZOLE
     Indication: CHOKING
     Route: 048

REACTIONS (10)
  - Drug ineffective [Unknown]
  - Haemorrhage [Unknown]
  - Drug dose omission [Not Recovered/Not Resolved]
  - Hypertension [Not Recovered/Not Resolved]
  - Choking [Unknown]
  - Off label use [Unknown]
  - Dysphagia [Unknown]
  - Feeling abnormal [Unknown]
  - Malaise [Unknown]
  - Fear of eating [Unknown]

NARRATIVE: CASE EVENT DATE: 2010
